FAERS Safety Report 5848791-7 (Version None)
Quarter: 2008Q3

REPORT INFORMATION
  Report Type: 
  Country: None (occurrence: None)
  Receive Date: 20080818
  Receipt Date: 20080808
  Transmission Date: 20090109
  Serious: Yes (Death)
  Sender: FDA-Public Use
  Company Number: JP-ABBOTT-08P-087-0470021-00

PATIENT
  Age: 68 Year
  Sex: Male

DRUGS (2)
  1. LEUPLIN SR FOR INJECTION KIT [Suspect]
     Indication: PROSTATE CANCER STAGE IV
     Route: 058
     Dates: start: 20070618, end: 20070618
  2. LEUPLIN DEPOT 3.75 MG [Suspect]
     Indication: PROSTATE CANCER STAGE IV
     Dosage: 3.75 MG
     Dates: start: 20070420, end: 20070521

REACTIONS (6)
  - BONE LESION [None]
  - LYMPH NODE CANCER METASTATIC [None]
  - NEOPLASM MALIGNANT [None]
  - PAIN [None]
  - PROSTATE CANCER [None]
  - PROSTATIC SPECIFIC ANTIGEN INCREASED [None]
